FAERS Safety Report 9380981 (Version 2)
Quarter: 2013Q3

REPORT INFORMATION
  Report Type: Report from Study
  Country: CA (occurrence: CA)
  Receive Date: 20130703
  Receipt Date: 20130722
  Transmission Date: 20140515
  Serious: Yes (Hospitalization)
  Sender: FDA-Public Use
  Company Number: CA-ROCHE-1244101

PATIENT
  Sex: Female
  Weight: 46 kg

DRUGS (8)
  1. ACTEMRA [Suspect]
     Indication: RHEUMATOID ARTHRITIS
     Route: 042
     Dates: start: 20101116
  2. ACTEMRA [Suspect]
     Route: 065
     Dates: start: 20111121
  3. ACTEMRA [Suspect]
     Route: 065
     Dates: start: 20130604
  4. ARTHROTEC [Concomitant]
  5. SPIRIVA [Concomitant]
  6. SALBUTAMOL [Concomitant]
  7. ADVAIR [Concomitant]
  8. LIPITOR [Concomitant]

REACTIONS (2)
  - Chronic obstructive pulmonary disease [Unknown]
  - Pneumonia [Unknown]
